FAERS Safety Report 5891632-2 (Version None)
Quarter: 2008Q3

REPORT INFORMATION
  Report Type: 
  Country: None (occurrence: None)
  Receive Date: 20080908
  Receipt Date: 20080728
  Transmission Date: 20090109
  Serious: No
  Sender: FDA-Public Use
  Company Number: 002#2#2008-00331

PATIENT
  Sex: Female

DRUGS (3)
  1. NEUPRO [Suspect]
     Indication: PARKINSON'S DISEASE
     Dosage: 4MG/24H, 1 IN 1 D, TRANSDERMAL
     Route: 062
     Dates: start: 20070501, end: 20080501
  2. NEUPRO [Suspect]
     Indication: PARKINSON'S DISEASE
     Dosage: 4MG/24H, 1 IN 1 D, TRANSDERMAL
     Route: 062
     Dates: start: 20080701
  3. MIRAPEX [Suspect]
     Indication: PARKINSON'S DISEASE
     Dosage: 2MG, 1 IN 1 D, ORAL
     Route: 048
     Dates: start: 20080501, end: 20080701

REACTIONS (2)
  - PAIN IN EXTREMITY [None]
  - TREMOR [None]
